FAERS Safety Report 5976076-7 (Version None)
Quarter: 2008Q4

REPORT INFORMATION
  Report Type: 
  Country: None (occurrence: None)
  Receive Date: 20081202
  Receipt Date: 20081127
  Transmission Date: 20090506
  Serious: No
  Sender: FDA-Public Use
  Company Number: DE-EISAI MEDICAL RESEARCH-E2020-03738-SPO-DE

PATIENT
  Sex: Female
  Weight: 57 kg

DRUGS (4)
  1. ARICEPT [Suspect]
     Indication: DEMENTIA
     Route: 048
     Dates: start: 20081001
  2. LEVOTHYROXINE SODIUM [Concomitant]
  3. HOX-ALPHA [Concomitant]
  4. OSSOFORTIN [Concomitant]

REACTIONS (1)
  - GLOSSODYNIA [None]
